FAERS Safety Report 15762816 (Version 1)
Quarter: 2018Q4

REPORT INFORMATION
  Report Type: Spontaneous
  Country: US (occurrence: US)
  Receive Date: 20181226
  Receipt Date: 20181226
  Transmission Date: 20190205
  Serious: No
  Sender: FDA-Public Use
  Company Number: US-DUSA PHARMACEUTICALS, INC.-2060579

PATIENT
  Age: 53 Year
  Sex: Male

DRUGS (2)
  1. BLU-U BLUE LIGHT PHOTODYNAMIC THERAPY ILLUMINATOR [Suspect]
     Active Substance: DEVICE
  2. LEVULAN KERASTICK [Suspect]
     Active Substance: AMINOLEVULINIC ACID HYDROCHLORIDE
     Indication: ACTINIC KERATOSIS
     Route: 061
     Dates: start: 20181129, end: 20181129

REACTIONS (5)
  - Pain [Recovered/Resolved]
  - Swelling [Recovered/Resolved]
  - Hypersensitivity [Recovered/Resolved]
  - Rash pustular [Recovered/Resolved]
  - Erythema [Recovered/Resolved]

NARRATIVE: CASE EVENT DATE: 20181202
